FAERS Safety Report 6818963-3 (Version None)
Quarter: 2010Q3

REPORT INFORMATION
  Report Type: 
  Country: None (occurrence: None)
  Receive Date: 20100707
  Receipt Date: 20100303
  Transmission Date: 20110219
  Serious: Yes (Other)
  Sender: FDA-Public Use
  Company Number: US-ASTRAZENECA-2009SE16783

PATIENT
  Age: 13778 Day
  Sex: Male

DRUGS (7)
  1. SEROQUEL [Suspect]
     Route: 048
     Dates: start: 20060112
  2. LEXAPRO [Concomitant]
     Dates: start: 20060110
  3. TRAZODONE HYDROCHLORIDE [Concomitant]
     Dates: start: 20070206
  4. CLONAZEPAM [Concomitant]
     Dates: start: 20070206
  5. HYDROCHLOROTHIAZIDE [Concomitant]
     Dates: start: 20070216
  6. ZOLPIDEM [Concomitant]
     Dates: start: 20070822
  7. LAMICTAL [Concomitant]
     Dates: start: 20070925

REACTIONS (4)
  - DIABETES MELLITUS [None]
  - IMPAIRED FASTING GLUCOSE [None]
  - NEUROPATHY PERIPHERAL [None]
  - TYPE 2 DIABETES MELLITUS [None]
